FAERS Safety Report 9334188 (Version 1)
Quarter: 2013Q2

REPORT INFORMATION
  Report Type: Spontaneous
  Country: DE (occurrence: None)
  Receive Date: 20130604
  Receipt Date: 20130604
  Transmission Date: 20140414
  Serious: Yes (Other)
  Sender: FDA-Public Use
  Company Number: GER/GER/13/0029748

PATIENT
  Age: 41 Year
  Sex: Female
  Weight: 52 kg

DRUGS (3)
  1. SERTRALINE [Suspect]
     Indication: DEPRESSION
     Route: 048
  2. MEDIKINET [Suspect]
     Route: 048
     Dates: start: 20130123, end: 20130308
  3. OPIPRAMOL (OPIPRAMOL [Concomitant]

REACTIONS (8)
  - Hyperhidrosis [None]
  - Palpitations [None]
  - Panic attack [None]
  - Chills [None]
  - Restlessness [None]
  - Tachycardia [None]
  - Tachypnoea [None]
  - Tremor [None]
